FAERS Safety Report 15626145 (Version 2)
Quarter: 2019Q1

REPORT INFORMATION
  Report Type: Spontaneous
  Country: LY (occurrence: LY)
  Receive Date: 20181116
  Receipt Date: 20190207
  Transmission Date: 20190417
  Serious: Yes (Other)
  Sender: FDA-Public Use
  Company Number: LY-BIOVITRUM-2018LY1420

PATIENT
  Sex: Female

DRUGS (1)
  1. ORFADIN [Suspect]
     Active Substance: NITISINONE
     Indication: TYROSINAEMIA
     Dates: start: 20090412

REACTIONS (3)
  - Malignant transformation [Unknown]
  - Product supply issue [Unknown]
  - Alpha 1 foetoprotein increased [Unknown]
